FAERS Safety Report 15134698 (Version 1)
Quarter: 2018Q3

REPORT INFORMATION
  Report Type: Spontaneous
  Country: JP (occurrence: JP)
  Receive Date: 20180712
  Receipt Date: 20180712
  Transmission Date: 20181010
  Serious: Yes (Other)
  Sender: FDA-Public Use
  Company Number: JP-BAYER-2018-127133

PATIENT
  Sex: Male

DRUGS (1)
  1. NEXAVAR [Suspect]
     Active Substance: SORAFENIB
     Indication: HEPATIC CANCER
     Dosage: DAILY DOSE 400 MG
     Route: 048
     Dates: start: 20171204, end: 20180702

REACTIONS (3)
  - Metastases to central nervous system [Recovered/Resolved]
  - Hepatic cancer [None]
  - Dizziness [Recovered/Resolved]

NARRATIVE: CASE EVENT DATE: 20180626
